FAERS Safety Report 13458863 (Version 1)
Quarter: 2017Q2

REPORT INFORMATION
  Report Type: Spontaneous
  Country: BG (occurrence: BG)
  Receive Date: 20170419
  Receipt Date: 20170419
  Transmission Date: 20170830
  Serious: Yes (Hospitalization)
  Sender: FDA-Public Use
  Company Number: BG-ARALEZ PHARMACEUTICALS R+D INC.-ARA-TP-BG-2017-427

PATIENT
  Age: 58 Year
  Sex: Male

DRUGS (5)
  1. METOPROLOL SUCCINATE. [Suspect]
     Active Substance: METOPROLOL SUCCINATE
     Indication: HYPERTENSION
     Route: 048
  2. VALTENSIN [Concomitant]
     Indication: HYPERTENSION
     Route: 065
  3. METOPROLOL SUCCINATE. [Suspect]
     Active Substance: METOPROLOL SUCCINATE
     Dosage: HALF TABLET
     Route: 048
  4. CLOPIDOGREL [Concomitant]
     Active Substance: CLOPIDOGREL BISULFATE
     Indication: PRODUCT USED FOR UNKNOWN INDICATION
     Route: 065
  5. CRESTOR [Suspect]
     Active Substance: ROSUVASTATIN CALCIUM
     Indication: PRODUCT USED FOR UNKNOWN INDICATION
     Route: 065

REACTIONS (6)
  - Electrocardiogram ST segment depression [Unknown]
  - Troponin increased [Unknown]
  - Electrocardiogram T wave inversion [Unknown]
  - Acute coronary syndrome [Unknown]
  - Type 2 diabetes mellitus [Unknown]
  - Chest pain [Unknown]
